FAERS Safety Report 21349953 (Version 1)
Quarter: 2022Q3

REPORT INFORMATION
  Report Type: Spontaneous
  Country: US (occurrence: None)
  Receive Date: 20220917
  Receipt Date: 20220917
  Transmission Date: 20221026
  Serious: No
  Sender: FDA-Public Use
  Company Number: None

PATIENT
  Sex: Female

DRUGS (1)
  1. HUMIRA [Suspect]
     Active Substance: ADALIMUMAB
     Indication: Hidradenitis
     Dosage: FREQUENCY : WEEKLY;?
     Route: 058
     Dates: start: 20190226

REACTIONS (6)
  - Hidradenitis [None]
  - Condition aggravated [None]
  - Vulvovaginal pain [None]
  - Cyst [None]
  - Cyst rupture [None]
  - Haemorrhage [None]
